FAERS Safety Report 6611290-9 (Version None)
Quarter: 2010Q1

REPORT INFORMATION
  Report Type: 
  Country: None (occurrence: None)
  Receive Date: 20100302
  Receipt Date: 20100302
  Transmission Date: 20100710
  Serious: Yes (Hospitalization)
  Sender: FDA-Public Use
  Company Number: None

PATIENT
  Age: 56 Year
  Sex: Female
  Weight: 62.7 kg

DRUGS (9)
  1. COUMADIN [Suspect]
     Dosage: ALT 3 MG - 5 MG PO CHRONIC
     Route: 048
  2. ZITHROMAX [Suspect]
     Indication: UPPER RESPIRATORY TRACT INFECTION
     Dosage: PO RECENT
     Route: 048
  3. WELLBUTRIN SR [Concomitant]
  4. XANAX [Concomitant]
  5. METOPROLOL TARTRATE [Concomitant]
  6. SEROQUEL [Concomitant]
  7. CRESTOR [Concomitant]
  8. TYLENOL-500 [Concomitant]
  9. AMOXICILLIN [Concomitant]

REACTIONS (8)
  - COAGULOPATHY [None]
  - ECCHYMOSIS [None]
  - HAEMATOMA [None]
  - HAEMATURIA [None]
  - INCREASED TENDENCY TO BRUISE [None]
  - INTERNATIONAL NORMALISED RATIO INCREASED [None]
  - STREPTOCOCCAL INFECTION [None]
  - URINARY TRACT INFECTION [None]
